FAERS Safety Report 17013091 (Version 1)
Quarter: 2019Q4

REPORT INFORMATION
  Report Type: Spontaneous
  Country: US (occurrence: US)
  Receive Date: 20191001
  Receipt Date: 20191001
  Transmission Date: 20200122
  Serious: Yes (Hospitalization)
  Sender: FDA-Public Use
  Company Number: None

PATIENT
  Age: 61 Year
  Sex: Female

DRUGS (1)
  1. AMBRISENTAN TABLETS 30/BO: 5MG [Suspect]
     Active Substance: AMBRISENTAN
     Indication: PULMONARY ARTERIAL HYPERTENSION
     Route: 048
     Dates: start: 20121012

REACTIONS (7)
  - Cellulitis [None]
  - Respiration abnormal [None]
  - Pyrexia [None]
  - Septic shock [None]
  - Cardiac failure [None]
  - Sleep apnoea syndrome [None]
  - Cardiogenic shock [None]

NARRATIVE: CASE EVENT DATE: 20190831
